FAERS Safety Report 25476286 (Version 1)
Quarter: 2025Q2

REPORT INFORMATION
  Report Type: Spontaneous
  Country: CA (occurrence: CA)
  Receive Date: 20250625
  Receipt Date: 20250625
  Transmission Date: 20250717
  Serious: Yes (Other)
  Sender: NOVO NORDISK
  Company Number: None

PATIENT
  Age: 59 Year
  Sex: Female

DRUGS (6)
  1. SEMAGLUTIDE [Suspect]
     Active Substance: SEMAGLUTIDE
     Indication: Product used for unknown indication
     Route: 058
  2. FREMANEZUMAB [Suspect]
     Active Substance: FREMANEZUMAB
     Indication: Migraine prophylaxis
     Route: 058
  3. AMITRIPTYLINE [Concomitant]
     Active Substance: AMITRIPTYLINE
     Indication: Product used for unknown indication
  4. CANDESARTAN [Concomitant]
     Active Substance: CANDESARTAN
     Indication: Product used for unknown indication
  5. TOPAMAX [Concomitant]
     Active Substance: TOPIRAMATE
     Indication: Product used for unknown indication
  6. VITAMINS NOS [Concomitant]
     Active Substance: VITAMINS
     Indication: Product used for unknown indication

REACTIONS (6)
  - Blood glucose increased [Unknown]
  - Mental impairment [Unknown]
  - Migraine [Unknown]
  - Decreased appetite [Unknown]
  - Weight decreased [Unknown]
  - Drug ineffective [Unknown]
